FAERS Safety Report 13621960 (Version 1)
Quarter: 2017Q2

REPORT INFORMATION
  Report Type: Spontaneous
  Country: US (occurrence: US)
  Receive Date: 20170607
  Receipt Date: 20170607
  Transmission Date: 20170830
  Serious: No
  Sender: FDA-Public Use
  Company Number: US-ROCHE-1909164

PATIENT
  Sex: Female

DRUGS (1)
  1. XELODA [Suspect]
     Active Substance: CAPECITABINE
     Indication: PRODUCT USED FOR UNKNOWN INDICATION
     Dosage: 14 DAYS OF 21 DAY CYCLE
     Route: 048
     Dates: start: 20161214

REACTIONS (3)
  - Lacrimation increased [Unknown]
  - Eye irritation [Unknown]
  - Eye discharge [Unknown]
